FAERS Safety Report 8021849-2 (Version None)
Quarter: 2012Q1

REPORT INFORMATION
  Report Type: 
  Country: None (occurrence: None)
  Receive Date: 20120104
  Receipt Date: 20111229
  Transmission Date: 20120608
  Serious: Yes (Other)
  Sender: FDA-Public Use
  Company Number: GB-GILEAD-2011-0048633

PATIENT
  Age: 44 Year
  Sex: Male

DRUGS (3)
  1. RITONAVIR [Suspect]
  2. TRUVADA [Suspect]
     Indication: PRODUCT USED FOR UNKNOWN INDICATION
  3. REYATAZ [Suspect]

REACTIONS (1)
  - JAUNDICE [None]
